FAERS Safety Report 5292290-0 (Version None)
Quarter: 2007Q2

REPORT INFORMATION
  Report Type: 
  Country: None (occurrence: None)
  Receive Date: 20070403
  Receipt Date: 20070320
  Transmission Date: 20071010
  Serious: Yes (Hospitalization)
  Sender: FDA-Public Use
  Company Number: 02100-JPN-07-0127

PATIENT
  Age: 64 Year
  Sex: Female

DRUGS (15)
  1. CILOSTAZOL [Suspect]
     Indication: ANGIOPATHY
     Dosage: 100 MG ORAL
     Route: 048
     Dates: start: 20051123
  2. LISINOPRIL [Concomitant]
  3. DOBESILATE SODIUM [Concomitant]
  4. BENIDIPINE HYDROCHLORIDE [Concomitant]
  5. HYDROCHLOROTHIAZIDE [Concomitant]
  6. CARVEDILOL [Concomitant]
  7. ARTEMISIA ASIATICA 95% ETHANOL EXTRACT [Concomitant]
  8. PRAVASTATIN SODIUM [Concomitant]
  9. DOXAZOSIN MESYLATE [Concomitant]
  10. GLIMEPIRIDE [Concomitant]
  11. METFROMIN HYDROCHLORIDE [Concomitant]
  12. EPROSARTAN [Concomitant]
  13. TRIMETHAZIDINE 2HCL [Concomitant]
  14. DIMENHYDRATE [Concomitant]
  15. DOMPERIDONE [Concomitant]

REACTIONS (1)
  - PNEUMONIA BACTERIAL [None]
